FAERS Safety Report 8352698-3 (Version None)
Quarter: 2012Q2

REPORT INFORMATION
  Report Type: 
  Country: None (occurrence: None)
  Receive Date: 20120511
  Receipt Date: 20120503
  Transmission Date: 20120825
  Serious: Yes (Other)
  Sender: FDA-Public Use
  Company Number: FR-BAYER-2011-052121

PATIENT
  Age: 28 Year
  Sex: Female
  Weight: 63.946 kg

DRUGS (1)
  1. ESTRADIOL VALERATE/DIENOGEST [Suspect]
     Dosage: UNK
     Dates: start: 20100301

REACTIONS (4)
  - AMENORRHOEA [None]
  - VOMITING [None]
  - CAESAREAN SECTION [None]
  - PREGNANCY ON ORAL CONTRACEPTIVE [None]
